FAERS Safety Report 8690989 (Version 2)
Quarter: 2013Q4

REPORT INFORMATION
  Report Type: Spontaneous
  Country: US (occurrence: US)
  Receive Date: 20120730
  Receipt Date: 20131031
  Transmission Date: 20140711
  Serious: No
  Sender: FDA-Public Use
  Company Number: US-009507513-2012SP033082

PATIENT
  Age: 70 Year
  Sex: Female

DRUGS (5)
  1. SAPHRIS [Suspect]
     Indication: DEPRESSION
     Dosage: 5 MG, BID
     Route: 060
     Dates: start: 20110822, end: 20110907
  2. SAPHRIS [Suspect]
     Indication: BIPOLAR DISORDER
  3. SPIRIVA [Concomitant]
  4. WELCHOL [Concomitant]
  5. ARMOUR THYROID TABLETS [Concomitant]

REACTIONS (6)
  - Abdominal distension [Not Recovered/Not Resolved]
  - Alopecia [Not Recovered/Not Resolved]
  - Constipation [Not Recovered/Not Resolved]
  - Somnolence [Not Recovered/Not Resolved]
  - Drug ineffective [Not Recovered/Not Resolved]
  - Inappropriate schedule of drug administration [Not Recovered/Not Resolved]
